FAERS Safety Report 4842246-4 (Version None)
Quarter: 2005Q4

REPORT INFORMATION
  Report Type: 
  Country: None (occurrence: None)
  Receive Date: 20051129
  Receipt Date: 20051116
  Transmission Date: 20060501
  Serious: Yes (Other)
  Sender: FDA-Public Use
  Company Number: 2005158159

PATIENT
  Sex: Male
  Weight: 95.2554 kg

DRUGS (9)
  1. DIFLUCAN [Suspect]
     Indication: FUNGAL INFECTION
     Dosage: 100 MG
  2. ADVAIR (FLUCITASONE PROPIONATE, SALMETEROL XINAFOATE) [Concomitant]
  3. SEREVENT [Concomitant]
  4. TENORMIN [Concomitant]
  5. ACCUPRIL [Concomitant]
  6. PROZAC [Concomitant]
  7. ZOCOR [Concomitant]
  8. ASPIRIN [Concomitant]
  9. TIMOPTIC [Concomitant]

REACTIONS (1)
  - SCOTOMA [None]
